FAERS Safety Report 12397922 (Version 2)
Quarter: 2016Q2

REPORT INFORMATION
  Report Type: Spontaneous
  Country: DE (occurrence: DE)
  Receive Date: 20160524
  Receipt Date: 20160629
  Transmission Date: 20160815
  Serious: Yes (Other)
  Sender: FDA-Public Use
  Company Number: DE-WATSON-2016-10373

PATIENT
  Age: 80 Year
  Sex: Female

DRUGS (2)
  1. HEPARIN [Suspect]
     Active Substance: HEPARIN SODIUM
     Indication: CARDIAC VALVE REPLACEMENT COMPLICATION
     Dosage: UNK
     Route: 051
  2. PREDNISOLONE. [Concomitant]
     Active Substance: PREDNISOLONE
     Indication: ARTHRALGIA
     Dosage: 20 MG, DAILY
     Route: 065

REACTIONS (1)
  - Heparin-induced thrombocytopenia [Unknown]
